FAERS Safety Report 9877900 (Version 3)
Quarter: 2014Q2

REPORT INFORMATION
  Report Type: Spontaneous
  Country: US (occurrence: None)
  Receive Date: 20140204
  Receipt Date: 20140505
  Transmission Date: 20141212
  Serious: Yes (Other)
  Sender: FDA-Public Use
  Company Number: 2014-US-000811

PATIENT
  Age: 60 Year
  Sex: Female

DRUGS (1)
  1. XYREM (SODIUM OXYBATE) ORAL SOLUTION, 500MG/ML [Suspect]
     Indication: SLEEP DISORDER
     Route: 048
     Dates: start: 200610, end: 2007

REACTIONS (6)
  - Fall [None]
  - Hand fracture [None]
  - Vaginal prolapse [None]
  - Rectal prolapse [None]
  - Malaise [None]
  - Anxiety [None]
